FAERS Safety Report 19439360 (Version 2)
Quarter: 2021Q3

REPORT INFORMATION
  Report Type: Report from Study
  Country: US (occurrence: US)
  Receive Date: 20210618
  Receipt Date: 20210730
  Transmission Date: 20211014
  Serious: Yes (Hospitalization, Other)
  Sender: FDA-Public Use
  Company Number: US-PFIZER INC-2021697816

PATIENT
  Age: 81 Year
  Sex: Male
  Weight: 95.65 kg

DRUGS (15)
  1. CIPROFLOXACIN. [Concomitant]
     Active Substance: CIPROFLOXACIN
     Indication: CYSTITIS BACTERIAL
     Dosage: 500 MG, 2X/DAY
     Route: 048
     Dates: start: 20210519, end: 20210601
  2. ASPIRIN [ACETYLSALICYLIC ACID] [Concomitant]
     Active Substance: ASPIRIN
     Indication: CORONARY ARTERY DISEASE
     Dosage: 81 MG, 1X/DAY
     Route: 048
     Dates: start: 200412
  3. BINIMETINIB [Suspect]
     Active Substance: BINIMETINIB
     Indication: MALIGNANT MELANOMA
     Dosage: UNK MG, 2X/DAY
     Route: 048
     Dates: start: 20210211, end: 20210609
  4. TAMSULOSIN [Concomitant]
     Active Substance: TAMSULOSIN
     Indication: PROSTATOMEGALY
  5. AMOXICILLIN CLAVULANIC ACID [Concomitant]
     Active Substance: AMOXICILLIN\CLAVULANIC ACID
     Indication: CYSTITIS BACTERIAL
     Dosage: 1 DF [AMOXICILLIN TRIHYDRATE 875 MG]/[CLAVULANATE POTASSIUM 125 MG], 2X/DAY
     Route: 048
     Dates: start: 20210601, end: 20210607
  6. PEMBROLIZUMAB. [Suspect]
     Active Substance: PEMBROLIZUMAB
     Indication: MALIGNANT MELANOMA
     Dosage: UNK MG, DAY 1 EVERY 3 WEEKS (21 DAYS)
     Route: 041
     Dates: start: 20210211, end: 20210525
  7. TAMSULOSIN [Concomitant]
     Active Substance: TAMSULOSIN
     Indication: URINARY RETENTION
     Dosage: 0.4 MG, 2X/DAY
     Route: 048
     Dates: start: 20210330
  8. FLUDROCORTISONE [Concomitant]
     Active Substance: FLUDROCORTISONE
     Indication: HYPONATRAEMIA
     Dosage: 0.1 MG, 1X/DAY
     Route: 048
     Dates: start: 20210420
  9. LEVOTHYROXINE. [Concomitant]
     Active Substance: LEVOTHYROXINE
     Indication: THYROIDECTOMY
     Dosage: 150 UG, 1X/DAY
     Route: 048
  10. POTASSIUM CHLORIDE. [Concomitant]
     Active Substance: POTASSIUM CHLORIDE
     Indication: HYPOKALAEMIA
     Dosage: 40 MEQ, 2X/DAY
     Route: 048
     Dates: start: 20210423
  11. ENCORAFENIB [Suspect]
     Active Substance: ENCORAFENIB
     Indication: MALIGNANT MELANOMA
     Dosage: UNK MG, 1X/DAY
     Route: 048
     Dates: start: 20210211, end: 20210609
  12. SIMVASTATIN. [Concomitant]
     Active Substance: SIMVASTATIN
     Indication: HYPERLIPIDAEMIA
     Dosage: 20 MG, EVERY OTHER DAY
     Route: 048
     Dates: start: 200904
  13. MIRALAX [Concomitant]
     Active Substance: POLYETHYLENE GLYCOL 3350
     Indication: CONSTIPATION
     Dosage: 17 G, EVERY DAY AS NEEDED
     Route: 048
     Dates: start: 20210406
  14. FINASTERIDE. [Concomitant]
     Active Substance: FINASTERIDE
     Indication: PROSTATOMEGALY
     Dosage: 1 DF, 1X/DAY
     Route: 048
     Dates: start: 201307
  15. DICYCLOMINE [Concomitant]
     Active Substance: DICYCLOMINE HYDROCHLORIDE
     Indication: IRRITABLE BOWEL SYNDROME
     Dosage: 20 MG, 3X/DAY
     Route: 048
     Dates: start: 201310

REACTIONS (1)
  - Autoimmune neuropathy [Recovered/Resolved]

NARRATIVE: CASE EVENT DATE: 20210610
